FAERS Safety Report 4668479-8 (Version None)
Quarter: 2005Q2

REPORT INFORMATION
  Report Type: 
  Country: None (occurrence: None)
  Receive Date: 20050519
  Receipt Date: 20050510
  Transmission Date: 20051028
  Serious: Yes (Other)
  Sender: FDA-Public Use
  Company Number: 05-000121

PATIENT
  Age: 56 Year
  Sex: Female
  Weight: 52.2 kg

DRUGS (3)
  1. FEMRING [Suspect]
     Indication: MENOPAUSAL SYMPTOMS
     Dosage: SEE IMAGE
     Route: 067
     Dates: start: 20050117, end: 20050401
  2. FEMRING [Suspect]
     Indication: MENOPAUSAL SYMPTOMS
     Dosage: SEE IMAGE
     Route: 067
     Dates: start: 20050503
  3. METRONIDAZOLE [Suspect]
     Indication: ROSACEA
     Dosage: QD, TOPICAL
     Route: 061
     Dates: start: 19940101

REACTIONS (8)
  - BREAST INFECTION [None]
  - BREAST MASS [None]
  - DIARRHOEA [None]
  - DRUG INEFFECTIVE [None]
  - DYSPAREUNIA [None]
  - HOT FLUSH [None]
  - VAGINAL MYCOSIS [None]
  - WHITE BLOOD CELLS STOOL POSITIVE [None]
